FAERS Safety Report 11261418 (Version 1)
Quarter: 2015Q3

REPORT INFORMATION
  Report Type: Spontaneous
  Country: DK (occurrence: DK)
  Receive Date: 20150710
  Receipt Date: 20150710
  Transmission Date: 20151125
  Serious: Yes (Hospitalization, Disabling)
  Sender: FDA-Public Use
  Company Number: DK-WATSON-2015-14223

PATIENT
  Age: 52 Year
  Sex: Female

DRUGS (1)
  1. ALENDRONIC ACID (UNKNOWN) [Suspect]
     Active Substance: ALENDRONIC ACID
     Indication: OSTEOPOROSIS
     Dosage: UNK
     Route: 065
     Dates: start: 200809, end: 20130802

REACTIONS (12)
  - Foot operation [Recovered/Resolved]
  - Pain [Not Recovered/Not Resolved]
  - Nerve injury [Not Recovered/Not Resolved]
  - Sensory disturbance [Not Recovered/Not Resolved]
  - Pain in extremity [Unknown]
  - Foot fracture [Unknown]
  - Jaw operation [Recovered/Resolved]
  - Osteonecrosis of jaw [Unknown]
  - Drooling [Not Recovered/Not Resolved]
  - Eating disorder [Not Recovered/Not Resolved]
  - Lumbar vertebral fracture [Unknown]
  - Back pain [Unknown]

NARRATIVE: CASE EVENT DATE: 201308
